FAERS Safety Report 4504463-2 (Version None)
Quarter: 2004Q4

REPORT INFORMATION
  Report Type: 
  Country: None (occurrence: None)
  Receive Date: 20041116
  Receipt Date: 20041101
  Transmission Date: 20050328
  Serious: Yes (Hospitalization)
  Sender: FDA-Public Use
  Company Number: 210380

PATIENT
  Age: 43 Year

DRUGS (3)
  1. BEVACIZUMAB (BEVACIZUMAB) PWDR + SOLVENT, INFUSION SOLN, 100MG [Suspect]
     Indication: METASTATIC NEOPLASM
     Dosage: 15 MG/KG, Q3W, INTRAVENOUS
     Route: 042
     Dates: start: 20040803
  2. ERLOTINIB (ERLOTINIB) TABLET, 150MG [Suspect]
     Indication: METASTATIC NEOPLASM
     Dosage: 150 MG, QD, ORAL
     Route: 048
     Dates: start: 20040803
  3. AREDIA [Concomitant]

REACTIONS (5)
  - DISEASE PROGRESSION [None]
  - GENERAL PHYSICAL HEALTH DETERIORATION [None]
  - HYPERCALCAEMIA [None]
  - MALIGNANT PLEURAL EFFUSION [None]
  - METASTASES TO PLEURA [None]
